FAERS Safety Report 6112646-3 (Version None)
Quarter: 2009Q1

REPORT INFORMATION
  Report Type: 
  Country: None (occurrence: None)
  Receive Date: 20090312
  Receipt Date: 20090303
  Transmission Date: 20090719
  Serious: Yes (Other)
  Sender: FDA-Public Use
  Company Number: JP-BAYER-200910653BYL

PATIENT
  Age: 45 Year
  Sex: Male
  Weight: 58 kg

DRUGS (32)
  1. FLUDARA [Suspect]
     Indication: CHRONIC MYELOID LEUKAEMIA
     Dosage: AS USED: 50 MG  UNIT DOSE: 50 MG
     Route: 042
     Dates: start: 20080818, end: 20080823
  2. BUSULFEX [Suspect]
     Indication: CHRONIC MYELOID LEUKAEMIA
     Dosage: AS USED: 185.6 MG
     Route: 042
     Dates: start: 20080820, end: 20080823
  3. METHOTREXATE [Suspect]
     Indication: PROPHYLAXIS AGAINST GRAFT VERSUS HOST DISEASE
     Dosage: AS USED: 11 MG
     Route: 042
     Dates: start: 20080906, end: 20080906
  4. METHOTREXATE [Suspect]
     Dosage: AS USED: 11 MG
     Route: 042
     Dates: start: 20080901, end: 20080901
  5. METHOTREXATE [Suspect]
     Dosage: AS USED: 16 MG
     Route: 042
     Dates: start: 20080827, end: 20080827
  6. METHOTREXATE [Suspect]
     Dosage: AS USED: 11 MG
     Route: 042
     Dates: start: 20080829, end: 20080829
  7. PROGRAF [Concomitant]
     Indication: PROPHYLAXIS AGAINST GRAFT VERSUS HOST DISEASE
     Route: 042
     Dates: start: 20080825, end: 20080927
  8. LEUCOVORIN CALCIUM [Concomitant]
     Indication: PROPHYLAXIS AGAINST GRAFT VERSUS HOST DISEASE
     Dosage: AS USED: 44 MG
     Route: 042
     Dates: start: 20080907, end: 20080908
  9. LEUCOVORIN CALCIUM [Concomitant]
     Dosage: AS USED: 44 MG
     Route: 042
     Dates: start: 20080902, end: 20080903
  10. LEUCOVORIN CALCIUM [Concomitant]
     Dosage: AS USED: 48 MG
     Route: 042
     Dates: start: 20080828, end: 20080828
  11. LEUCOVORIN CALCIUM [Concomitant]
     Dosage: AS USED: 44 MG
     Route: 042
     Dates: start: 20080829, end: 20080830
  12. SOLU-CORTEF [Concomitant]
     Dosage: AS USED: 100 MG
     Route: 042
     Dates: start: 20080826, end: 20080826
  13. GRAN [Concomitant]
     Dosage: AS USED: 300 ?G
     Route: 058
     Dates: start: 20080901, end: 20080910
  14. PRODIF [Concomitant]
     Indication: INFECTION PROPHYLAXIS
     Dosage: AS USED: 100 MG
     Route: 042
     Dates: start: 20080822, end: 20080903
  15. ZOVIRAX [Concomitant]
     Indication: INFECTION PROPHYLAXIS
     Dosage: AS USED: 250 MG
     Route: 042
     Dates: start: 20080822, end: 20081002
  16. MAXIPIME [Concomitant]
     Indication: INFECTION PROPHYLAXIS
     Dosage: AS USED: 2 G
     Route: 042
     Dates: start: 20081104, end: 20081107
  17. CIPROXAN [Concomitant]
     Indication: INFECTION PROPHYLAXIS
     Dosage: AS USED: 600 MG
     Route: 048
     Dates: start: 20080818, end: 20080903
  18. URSO 250 [Concomitant]
     Dosage: AS USED: 600 MG
     Route: 048
     Dates: start: 20080818
  19. DIFLUCAN [Concomitant]
     Indication: INFECTION PROPHYLAXIS
     Dosage: AS USED: 200 MG
     Route: 048
     Dates: start: 20080818, end: 20080915
  20. ZOVIRAX [Concomitant]
     Route: 048
     Dates: start: 20080819
  21. LAC B [Concomitant]
     Dosage: AS USED: 2 G
     Route: 048
     Dates: start: 20080819, end: 20080827
  22. MAGNESIUM OXIDE [Concomitant]
     Dosage: AS USED: 1.5 G
     Route: 048
     Dates: start: 20080823
  23. LAXOBERON [Concomitant]
     Route: 048
     Dates: start: 20080823
  24. ZYRTEC [Concomitant]
     Dosage: AS USED: 10 MG
     Route: 048
     Dates: start: 20080901
  25. ITRIZOLE [Concomitant]
     Indication: INFECTION PROPHYLAXIS
     Dosage: AS USED: 200 MG
     Route: 048
     Dates: start: 20080912
  26. BAKTAR [Concomitant]
     Indication: INFECTION PROPHYLAXIS
     Dosage: TOTAL DAILY DOSE: 1 DF  UNIT DOSE: 1 DF
     Route: 048
     Dates: start: 20080930
  27. RESPLEN [Concomitant]
     Dosage: AS USED: 3 DF  UNIT DOSE: 1 DF
     Route: 048
     Dates: start: 20081103, end: 20081210
  28. MUCODYNE [Concomitant]
     Dosage: TOTAL DAILY DOSE: 3 DF  UNIT DOSE: 1 DF
     Route: 048
     Dates: start: 20081103, end: 20081210
  29. PREDNISOLONE [Concomitant]
     Route: 048
     Dates: start: 20081007
  30. HUMAN RED BLOOD CELLS [Concomitant]
     Route: 042
     Dates: start: 20080916, end: 20080916
  31. PLATELETS [Concomitant]
     Route: 042
     Dates: start: 20080905, end: 20081021
  32. VALPROATE SODIUM [Concomitant]
     Dosage: AS USED: 600 MG
     Route: 048
     Dates: start: 20080818, end: 20080826

REACTIONS (11)
  - ACUTE GRAFT VERSUS HOST DISEASE [None]
  - ALANINE AMINOTRANSFERASE INCREASED [None]
  - ANAEMIA [None]
  - BLOOD BILIRUBIN INCREASED [None]
  - CYTOMEGALOVIRUS VIRAEMIA [None]
  - DIARRHOEA [None]
  - FEBRILE NEUTROPENIA [None]
  - GAMMA-GLUTAMYLTRANSFERASE INCREASED [None]
  - NAUSEA [None]
  - OROPHARYNGEAL PAIN [None]
  - VOMITING [None]
